FAERS Safety Report 11768101 (Version 1)
Quarter: 2015Q4

REPORT INFORMATION
  Report Type: Spontaneous
  Country: US (occurrence: US)
  Receive Date: 20151123
  Receipt Date: 20151123
  Transmission Date: 20160304
  Serious: No
  Sender: FDA-Public Use
  Company Number: US-JNJFOC-20151106932

PATIENT
  Age: 78 Year
  Sex: Female
  Weight: 58.97 kg

DRUGS (2)
  1. ZYRTEC [Suspect]
     Active Substance: CETIRIZINE HYDROCHLORIDE
     Route: 048
  2. ZYRTEC [Suspect]
     Active Substance: CETIRIZINE HYDROCHLORIDE
     Indication: MULTIPLE ALLERGIES
     Dosage: ONCE WHENEVER NEEDED
     Route: 048
     Dates: start: 20151020, end: 20151020

REACTIONS (2)
  - Wrong patient received medication [Unknown]
  - Expired product administered [Unknown]

NARRATIVE: CASE EVENT DATE: 20151020
